FAERS Safety Report 8906233 (Version 1)
Quarter: 2012Q4

REPORT INFORMATION
  Report Type: Spontaneous
  Country: US (occurrence: None)
  Receive Date: 20121108
  Receipt Date: 20121108
  Transmission Date: 20130627
  Serious: Yes (Hospitalization)
  Sender: FDA-Public Use
  Company Number: US-1194939

PATIENT
  Age: 81 Year
  Sex: Female

DRUGS (1)
  1. TRAVATAN Z [Suspect]
     Dosage: a few years until unknown
     Route: 047

REACTIONS (7)
  - Gastrointestinal haemorrhage [None]
  - Diarrhoea haemorrhagic [None]
  - Sinus disorder [None]
  - Abdominal discomfort [None]
  - Dysgeusia [None]
  - Gastrointestinal tract mucosal pigmentation [None]
  - Gastrointestinal mucosal disorder [None]
